FAERS Safety Report 6637902-1 (Version None)
Quarter: 2010Q1

REPORT INFORMATION
  Report Type: 
  Country: None (occurrence: None)
  Receive Date: 20100315
  Receipt Date: 20100315
  Transmission Date: 20100710
  Serious: No
  Sender: FDA-Public Use
  Company Number: None

PATIENT
  Age: 75 Year
  Sex: Female
  Weight: 81.6475 kg

DRUGS (3)
  1. TOPIRAMATE [Suspect]
     Indication: BACK PAIN
     Dosage: 100 MG 2X PO
     Route: 048
     Dates: start: 20100212, end: 20100305
  2. TOPIRAMATE [Suspect]
     Indication: DEAFNESS
     Dosage: 100 MG 2X PO
     Route: 048
     Dates: start: 20100212, end: 20100305
  3. TOPIRAMATE [Suspect]
     Indication: THINKING ABNORMAL
     Dosage: 100 MG 2X PO
     Route: 048
     Dates: start: 20100212, end: 20100305

REACTIONS (6)
  - ASTHENIA [None]
  - BACK PAIN [None]
  - DEAFNESS [None]
  - FATIGUE [None]
  - SPEECH DISORDER [None]
  - THINKING ABNORMAL [None]
